FAERS Safety Report 6258734-2 (Version None)
Quarter: 2009Q3

REPORT INFORMATION
  Report Type: 
  Country: None (occurrence: None)
  Receive Date: 20090707
  Receipt Date: 20090626
  Transmission Date: 20100115
  Serious: Yes (Hospitalization)
  Sender: FDA-Public Use
  Company Number: B0579056A

PATIENT
  Sex: Male
  Weight: 64 kg

DRUGS (10)
  1. LAMICTAL [Suspect]
     Indication: EPILEPSY
     Route: 048
     Dates: start: 20090404
  2. TEGRETOL [Concomitant]
     Indication: EPILEPSY
     Dosage: 500MG PER DAY
     Route: 048
     Dates: start: 20070322
  3. UNKNOWN DRUG [Concomitant]
     Indication: CEREBRAL INFARCTION
     Dosage: 150MG PER DAY
     Route: 048
     Dates: start: 20080422
  4. MUCOSTA [Concomitant]
     Indication: GASTRITIS
     Dosage: 300MG PER DAY
     Route: 048
     Dates: start: 20070322
  5. MAGNESIUM OXIDE [Concomitant]
     Indication: CONSTIPATION
     Dosage: 2G PER DAY
     Route: 048
     Dates: start: 20081129
  6. LIMAPROST [Concomitant]
     Indication: LUMBAR SPINAL STENOSIS
     Dosage: 15MCG PER DAY
     Route: 048
     Dates: start: 20070809
  7. PERINDOPRIL [Concomitant]
     Indication: HYPERTENSION
     Dosage: 2MG PER DAY
     Route: 048
     Dates: start: 20081213
  8. ASPIRIN [Concomitant]
     Indication: CEREBRAL INFARCTION
     Dosage: 100MG PER DAY
     Route: 048
     Dates: start: 20080104
  9. MOBIC [Concomitant]
     Indication: LUMBAR SPINAL STENOSIS
     Dosage: 10MG PER DAY
     Route: 048
     Dates: start: 20070322
  10. ALOSENN [Concomitant]
     Indication: CONSTIPATION
     Dosage: .5G PER DAY
     Route: 048
     Dates: start: 20081129

REACTIONS (3)
  - PNEUMONIA ASPIRATION [None]
  - STATUS EPILEPTICUS [None]
  - TONGUE BITING [None]
